FAERS Safety Report 9936821 (Version 1)
Quarter: 2014Q1

REPORT INFORMATION
  Report Type: Spontaneous
  Country: US (occurrence: None)
  Receive Date: 20140110
  Receipt Date: 20140110
  Transmission Date: 20141002
  Serious: Yes (Death)
  Sender: FDA-Public Use
  Company Number: 163-22393-13030750

PATIENT
  Age: 80 Year
  Sex: Male

DRUGS (5)
  1. ISTODAX [Suspect]
     Indication: PERIPHERAL T-CELL LYMPHOMA UNSPECIFIED
     Route: 042
     Dates: start: 20120907, end: 20121226
  2. COREG (CARVEDILOL) (UNKNOWN) [Concomitant]
  3. GLUCOPHAGE (UNKNOWN) [Concomitant]
  4. LOTREL (LOTREL) (UNKNOWN) [Concomitant]
  5. LANTUS (INSULIN GLARGINE) (UNKNOWN) [Concomitant]

REACTIONS (3)
  - Peripheral T-cell lymphoma unspecified [None]
  - Disease progression [None]
  - Cardiopulmonary failure [None]
